FAERS Safety Report 13438604 (Version 2)
Quarter: 2017Q2

REPORT INFORMATION
  Report Type: Spontaneous
  Country: SE (occurrence: SE)
  Receive Date: 20170413
  Receipt Date: 20170510
  Transmission Date: 20170830
  Serious: Yes (Hospitalization)
  Sender: FDA-Public Use
  Company Number: SE-MUNDIPHARMA DS AND PHARMACOVIGILANCE-GBR-2017-0044548

PATIENT

DRUGS (4)
  1. ESOMEPRAZOLE [Concomitant]
     Active Substance: ESOMEPRAZOLE
     Indication: PRODUCT USED FOR UNKNOWN INDICATION
  2. ALVEDON [Suspect]
     Active Substance: ACETAMINOPHEN
     Indication: PRODUCT USED FOR UNKNOWN INDICATION
     Route: 048
     Dates: start: 20161007, end: 20161007
  3. OXYNORM [Suspect]
     Active Substance: OXYCODONE HYDROCHLORIDE
     Indication: PRODUCT USED FOR UNKNOWN INDICATION
     Dosage: 40 KAPSLAR
     Route: 048
     Dates: start: 20161007, end: 20161007
  4. LEVAXIN [Concomitant]
     Active Substance: LEVOTHYROXINE SODIUM
     Indication: PRODUCT USED FOR UNKNOWN INDICATION

REACTIONS (8)
  - Overdose [Unknown]
  - Analgesic drug level increased [Unknown]
  - Incorrect dose administered [Unknown]
  - Renal disorder [Unknown]
  - Depressed level of consciousness [Unknown]
  - Liver function test abnormal [Unknown]
  - Respiratory arrest [Unknown]
  - Toxicity to various agents [Unknown]

NARRATIVE: CASE EVENT DATE: 20161007
